FAERS Safety Report 8083419-X (Version None)
Quarter: 2012Q1

REPORT INFORMATION
  Report Type: 
  Country: None (occurrence: None)
  Receive Date: 20120127
  Receipt Date: 20110117
  Transmission Date: 20120608
  Serious: No
  Sender: FDA-Public Use
  Company Number: US-ABBOTT-11P-163-0698069-00

PATIENT
  Age: 40 Year
  Sex: Female

DRUGS (1)
  1. HUMIRA [Suspect]
     Indication: CROHN'S DISEASE
     Dosage: 29 JAN 2011 80MG INJECTION, THEN 40MG EOW
     Dates: start: 20110114

REACTIONS (2)
  - DYSPNOEA [None]
  - INJECTION SITE PAIN [None]
